FAERS Safety Report 6637808-8 (Version None)
Quarter: 2010Q1

REPORT INFORMATION
  Report Type: 
  Country: None (occurrence: None)
  Receive Date: 20100317
  Receipt Date: 20100303
  Transmission Date: 20100710
  Serious: Yes (Hospitalization, Other)
  Sender: FDA-Public Use
  Company Number: PHEH2010US02860

PATIENT
  Sex: Female
  Weight: 64 kg

DRUGS (5)
  1. TEGRETOL [Suspect]
     Dosage: 800 MG, QD
     Route: 048
  2. TEGRETOL [Suspect]
     Dosage: 200 MG, QD
     Route: 048
     Dates: start: 20090601, end: 20090701
  3. TEGRETOL [Suspect]
     Dosage: 200 MG, TID
     Route: 048
     Dates: start: 20090701
  4. PROPRANOLOL HYDROCHLORIDE [Concomitant]
  5. BENADRYL ^PFIZER WARNER-LAMBERT^ [Concomitant]

REACTIONS (8)
  - AMNESIA [None]
  - DEPRESSION [None]
  - EXTRAPYRAMIDAL DISORDER [None]
  - FEELING ABNORMAL [None]
  - HYPONATRAEMIA [None]
  - MANIA [None]
  - PSYCHOTIC DISORDER [None]
  - TACHYCARDIA [None]
